FAERS Safety Report 10944392 (Version 1)
Quarter: 2015Q1

REPORT INFORMATION
  Report Type: Spontaneous
  Country: TN (occurrence: None)
  Receive Date: 20150318
  Receipt Date: 20150318
  Transmission Date: 20150721
  Serious: Yes (Other)
  Sender: FDA-Public Use
  Company Number: TN-ZYDUS-006956

PATIENT
  Age: 50 Year
  Sex: Female

DRUGS (3)
  1. CELECOXIB (CELECOXIB) [Suspect]
     Active Substance: CELECOXIB
  2. VALPROIC ACID (VALPROIC ACID) [Suspect]
     Active Substance: VALPROIC ACID
     Indication: PRODUCT USED FOR UNKNOWN INDICATION
  3. LEVETIRACETAM (LEVETIRACETAM) [Suspect]
     Active Substance: LEVETIRACETAM
     Indication: EPILEPSY

REACTIONS (9)
  - Multi-organ disorder [None]
  - Cardiac arrest [None]
  - Cardio-respiratory arrest [None]
  - Status epilepticus [None]
  - Aspartate aminotransferase increased [None]
  - Lymphadenopathy [None]
  - Pyrexia [None]
  - Drug reaction with eosinophilia and systemic symptoms [None]
  - Alanine aminotransferase increased [None]
